FAERS Safety Report 6424936-5 (Version None)
Quarter: 2009Q4

REPORT INFORMATION
  Report Type: 
  Country: None (occurrence: None)
  Receive Date: 20091102
  Receipt Date: 20091102
  Transmission Date: 20100525
  Serious: Yes (Life-Threatening, Hospitalization)
  Sender: FDA-Public Use
  Company Number: None

PATIENT
  Age: 69 Year

DRUGS (1)
  1. IOPROMIDE [Suspect]
     Indication: COMPUTERISED TOMOGRAM
     Dosage: 180 ML ONCE IV
     Route: 042
     Dates: start: 20090817, end: 20090817

REACTIONS (4)
  - CONDITION AGGRAVATED [None]
  - HYPONATRAEMIA [None]
  - RENAL FAILURE ACUTE [None]
  - RENAL TUBULAR NECROSIS [None]
